FAERS Safety Report 16277602 (Version 1)
Quarter: 2019Q2

REPORT INFORMATION
  Report Type: Spontaneous
  Country: ES (occurrence: ES)
  Receive Date: 20190506
  Receipt Date: 20190506
  Transmission Date: 20190711
  Serious: Yes (Hospitalization)
  Sender: FDA-Public Use
  Company Number: ES-MYLANLABS-2019M1042387

PATIENT
  Age: 44 Year

DRUGS (3)
  1. YURELAX 10 MG C?PSULAS DURAS [Suspect]
     Active Substance: CYCLOBENZAPRINE HYDROCHLORIDE
     Indication: NECK PAIN
     Dosage: UNK
     Route: 048
     Dates: start: 20181010, end: 20181028
  2. ARCOXIA [Suspect]
     Active Substance: ETORICOXIB
     Indication: NECK PAIN
     Dosage: 60 MILLIGRAM, QD
     Route: 048
     Dates: start: 20181010, end: 20181028
  3. FLUCONAZOLE. [Suspect]
     Active Substance: FLUCONAZOLE
     Indication: SKIN CANDIDA
     Dosage: 150 MILLIGRAM, TOTAL (150 MG UNA SOLA TOMA VO.)
     Route: 048
     Dates: start: 20181023, end: 20181023

REACTIONS (3)
  - Rash pruritic [Recovered/Resolved]
  - Eosinophilia [Recovering/Resolving]
  - Perivascular dermatitis [Recovered/Resolved]

NARRATIVE: CASE EVENT DATE: 20181023
